FAERS Safety Report 6349635-X (Version None)
Quarter: 2009Q3

REPORT INFORMATION
  Report Type: 
  Country: None (occurrence: None)
  Receive Date: 20090911
  Receipt Date: 20090903
  Transmission Date: 20100115
  Serious: Yes (Hospitalization)
  Sender: FDA-Public Use
  Company Number: AU-ABBOTT-09P-008-0586756-00

PATIENT
  Sex: Male
  Weight: 61 kg

DRUGS (6)
  1. HUMIRA [Suspect]
     Indication: CROHN'S DISEASE
     Route: 058
     Dates: start: 20090520, end: 20090603
  2. HUMIRA [Suspect]
     Route: 058
     Dates: start: 20090617
  3. PREDNISOLONE [Concomitant]
     Indication: CROHN'S DISEASE
  4. MESALAZINE [Concomitant]
     Indication: CROHN'S DISEASE
  5. TRIMETHOPRIM [Concomitant]
     Indication: DRUG USE FOR UNKNOWN INDICATION
  6. AZATHIOPRINE [Concomitant]
     Indication: CROHN'S DISEASE

REACTIONS (1)
  - PNEUMOCYSTIS JIROVECI PNEUMONIA [None]
